FAERS Safety Report 4348199-X (Version None)
Quarter: 2004Q2

REPORT INFORMATION
  Report Type: 
  Country: None (occurrence: None)
  Receive Date: 20040422
  Receipt Date: 20040401
  Transmission Date: 20050107
  Serious: Yes (Other)
  Sender: FDA-Public Use
  Company Number: USA040463891

PATIENT
  Age: 70 Year
  Sex: Female

DRUGS (7)
  1. FORTEO [Suspect]
     Indication: OSTEOPOROSIS
     Dosage: 20 UG DAY
     Dates: start: 20040218
  2. PENTASA [Concomitant]
  3. PURINETHOL [Concomitant]
  4. CHOLESTYRAMINE [Concomitant]
  5. ACIPHEX [Concomitant]
  6. VERAPAMIL [Concomitant]
  7. NEURONTIN [Concomitant]

REACTIONS (3)
  - COLLAPSE OF LUNG [None]
  - HAEMOPTYSIS [None]
  - MUSCLE CRAMP [None]
